FAERS Safety Report 7445907-6 (Version None)
Quarter: 2011Q2

REPORT INFORMATION
  Report Type: 
  Country: None (occurrence: None)
  Receive Date: 20110429
  Receipt Date: 20100616
  Transmission Date: 20111010
  Serious: No
  Sender: FDA-Public Use
  Company Number: US-ASTRAZENECA-2010SE28483

PATIENT

DRUGS (3)
  1. IRON [Concomitant]
  2. NEXIUM [Suspect]
     Route: 048
  3. FOLIC ACID [Concomitant]

REACTIONS (1)
  - IRON METABOLISM DISORDER [None]
